FAERS Safety Report 10183823 (Version 1)
Quarter: 2014Q2

REPORT INFORMATION
  Report Type: Spontaneous
  Country: TR (occurrence: TR)
  Receive Date: 20140520
  Receipt Date: 20140520
  Transmission Date: 20141212
  Serious: Yes (Other)
  Sender: FDA-Public Use
  Company Number: TR-WATSON-2014-10393

PATIENT
  Age: 86 Year
  Sex: Male

DRUGS (1)
  1. PREDNISOLONE (UNKNOWN) [Suspect]
     Indication: TEMPORAL ARTERITIS
     Dosage: 1 MG/KG, DAILY
     Route: 065
     Dates: start: 201007

REACTIONS (1)
  - Substance-induced psychotic disorder [Recovering/Resolving]
